FAERS Safety Report 10856019 (Version 1)
Quarter: 2015Q1

REPORT INFORMATION
  Report Type: Spontaneous
  Country: US (occurrence: None)
  Receive Date: 20150218
  Receipt Date: 20150218
  Transmission Date: 20150721
  Serious: No
  Sender: FDA-Public Use
  Company Number: None

PATIENT
  Age: 8 Year
  Sex: Female
  Weight: 22.23 kg

DRUGS (1)
  1. IC FAMOTIDINE 40 MG/5 ML SUSP LUPIN [Suspect]
     Active Substance: FAMOTIDINE
     Indication: GASTROOESOPHAGEAL REFLUX DISEASE
     Route: 048
     Dates: start: 20150207, end: 20150217

REACTIONS (3)
  - Drug ineffective [None]
  - Drug dose omission [None]
  - Rash macular [None]

NARRATIVE: CASE EVENT DATE: 20150214
